FAERS Safety Report 4452618-8 (Version None)
Quarter: 2004Q3

REPORT INFORMATION
  Report Type: 
  Country: None (occurrence: None)
  Receive Date: 20040916
  Receipt Date: 20040901
  Transmission Date: 20050211
  Serious: Yes (Disabling)
  Sender: FDA-Public Use
  Company Number: 2004AP04643

PATIENT
  Age: 60 Year
  Sex: Female
  Weight: 46 kg

DRUGS (7)
  1. MARCAINE [Suspect]
     Indication: EPIDURAL ANAESTHESIA
     Dates: start: 20040525, end: 20040608
  2. MARCAINE [Suspect]
     Indication: HERPES ZOSTER
     Dates: start: 20040525, end: 20040608
  3. CARBOCAIN [Concomitant]
  4. NEUROTROPIN [Concomitant]
  5. VEEN-F [Concomitant]
  6. KENACORT-A [Concomitant]
  7. CYANOCOBALAMIN [Concomitant]

REACTIONS (10)
  - ALANINE AMINOTRANSFERASE INCREASED [None]
  - ANAESTHETIC COMPLICATION [None]
  - ASPARTATE AMINOTRANSFERASE INCREASED [None]
  - CHEST PAIN [None]
  - GAMMA-GLUTAMYLTRANSFERASE INCREASED [None]
  - HEPATIC FUNCTION ABNORMAL [None]
  - NAUSEA [None]
  - PALLOR [None]
  - TREMOR [None]
  - VOMITING [None]
